FAERS Safety Report 4280123-0 (Version None)
Quarter: 2004Q1

REPORT INFORMATION
  Report Type: 
  Country: None (occurrence: None)
  Receive Date: 20040126
  Receipt Date: 20040119
  Transmission Date: 20041129
  Serious: Yes (Hospitalization)
  Sender: FDA-Public Use
  Company Number: STA-AE-04-001

PATIENT
  Age: 11 Week
  Sex: Male

DRUGS (4)
  1. CAPTOPRIL [Suspect]
     Dosage: 1 MG EVERY 8 HOURS, ORALLY
     Route: 048
  2. THEOPHYLLINE [Concomitant]
  3. FUROSEMIDE [Concomitant]
  4. ALDACTONE [Concomitant]

REACTIONS (7)
  - BODY TEMPERATURE INCREASED [None]
  - BRADYCARDIA [None]
  - CATHETER SITE INFECTION [None]
  - CENTRAL LINE INFECTION [None]
  - DIARRHOEA [None]
  - STAPHYLOCOCCAL INFECTION [None]
  - TOXIC EPIDERMAL NECROLYSIS [None]
